FAERS Safety Report 24378896 (Version 1)
Quarter: 2024Q3

REPORT INFORMATION
  Report Type: Spontaneous
  Country: US (occurrence: US)
  Receive Date: 20240930
  Receipt Date: 20240930
  Transmission Date: 20241017
  Serious: Yes (Other)
  Sender: NOVARTIS
  Company Number: US-002147023-NVSC2024US189638

PATIENT

DRUGS (1)
  1. KISQALI [Suspect]
     Active Substance: RIBOCICLIB
     Indication: Product used for unknown indication
     Dosage: UNK
     Route: 065

REACTIONS (30)
  - Metastases to bone [Unknown]
  - Metastases to liver [Unknown]
  - Hepatic neoplasm [Unknown]
  - Electrocardiogram QT prolonged [Unknown]
  - Skin irritation [Unknown]
  - Neutrophil count decreased [Unknown]
  - Abdominal lymphadenopathy [Unknown]
  - Nausea [Unknown]
  - Rash [Unknown]
  - Stomatitis [Unknown]
  - Urine abnormality [Unknown]
  - Cardiac disorder [Unknown]
  - Hepatic enzyme increased [Unknown]
  - Alopecia [Unknown]
  - Solar lentigo [Unknown]
  - Hot flush [Unknown]
  - Tumour marker abnormal [Unknown]
  - Tumour marker increased [Unknown]
  - Oropharyngeal pain [Unknown]
  - Fatigue [Unknown]
  - Breast neoplasm [Unknown]
  - Weight decreased [Unknown]
  - Asthenia [Unknown]
  - Gastrooesophageal reflux disease [Unknown]
  - Contusion [Unknown]
  - Neoplasm [Unknown]
  - Blood creatine increased [Unknown]
  - Diarrhoea [Unknown]
  - White blood cell count decreased [Unknown]
  - Lymphadenopathy [Unknown]
